FAERS Safety Report 18922245 (Version 1)
Quarter: 2021Q1

REPORT INFORMATION
  Report Type: Spontaneous
  Country: US (occurrence: US)
  Receive Date: 20210221
  Receipt Date: 20210221
  Transmission Date: 20210420
  Serious: Yes (Disabling)
  Sender: FDA-Public Use
  Company Number: None

PATIENT
  Age: 37 Year
  Sex: Male
  Weight: 81 kg

DRUGS (1)
  1. TOBRAMYCIN. [Suspect]
     Active Substance: TOBRAMYCIN
     Indication: STAPHYLOCOCCAL INFECTION
     Dosage: ?          QUANTITY:1 AMPULE;OTHER ROUTE:NASAL IRRIGATION?
     Dates: start: 20180413, end: 20180517

REACTIONS (2)
  - Oscillopsia [None]
  - Vestibular disorder [None]

NARRATIVE: CASE EVENT DATE: 20180516
